FAERS Safety Report 14990940 (Version 1)
Quarter: 2018Q2

REPORT INFORMATION
  Report Type: Spontaneous
  Country: DE (occurrence: DE)
  Receive Date: 20180608
  Receipt Date: 20180608
  Transmission Date: 20180711
  Serious: Yes (Hospitalization)
  Sender: FDA-Public Use
  Company Number: DE-TEVA-2018-DE-902068

PATIENT
  Age: 74 Year
  Sex: Female
  Weight: 73 kg

DRUGS (6)
  1. AMLODIPIN [Suspect]
     Active Substance: AMLODIPINE BESYLATE
     Dosage: BEDARF
     Route: 048
  2. ZEBETA [Suspect]
     Active Substance: BISOPROLOL FUMARATE
     Dosage: 1-0-1-0
     Route: 048
  3. PANTOPRAZOL [Concomitant]
     Active Substance: PANTOPRAZOLE SODIUM
     Dosage: BEDARF
     Route: 048
  4. EZETIMIB [Concomitant]
     Active Substance: EZETIMIBE
     Dosage: 10|40 MG, 0-0-1-0
     Route: 048
  5. HYDROCHLOROTHIAZIDE. [Suspect]
     Active Substance: HYDROCHLOROTHIAZIDE
     Dosage: 1-0-1-0
     Route: 048
  6. ACETYLSALICYLSAEURE [Concomitant]
     Active Substance: ASPIRIN
     Dosage: 0-1-0-0
     Route: 048

REACTIONS (4)
  - Dizziness [Unknown]
  - Visual impairment [Unknown]
  - Urinary tract infection [Unknown]
  - Abdominal pain upper [Unknown]
